FAERS Safety Report 4277313-X (Version None)
Quarter: 2004Q1

REPORT INFORMATION
  Report Type: 
  Country: None (occurrence: None)
  Receive Date: 20040121
  Receipt Date: 20040116
  Transmission Date: 20041129
  Serious: No
  Sender: FDA-Public Use
  Company Number: 000692

PATIENT
  Age: 49 Year
  Sex: Female
  Weight: 81.6 kg

DRUGS (12)
  1. MIRTAZAPINE [Suspect]
     Indication: DEPRESSION
     Dosage: 60.00 MG, QD, ORAL
     Route: 048
     Dates: start: 20040115, end: 20040115
  2. DURAGESIC [Concomitant]
  3. CARAFATE /USA/ (SUCRALFATE) [Concomitant]
  4. TIAZAC [Concomitant]
  5. REGLAN / USA/ (METOCLOPRAMIDE HYDROCHLORIDE) [Concomitant]
  6. ZOFRAN [Concomitant]
  7. DOXEPIN HCL [Concomitant]
  8. TENORMIN [Concomitant]
  9. FLONASE [Concomitant]
  10. CLARINEX/USA/(DESLORATADINE) [Concomitant]
  11. POTASSIUM [Concomitant]
  12. DIPHENHYDRAMINE HCL [Concomitant]

REACTIONS (3)
  - DYSGEUSIA [None]
  - OROPHARYNGEAL SWELLING [None]
  - SWOLLEN TONGUE [None]
